FAERS Safety Report 14993055 (Version 2)
Quarter: 2018Q2

REPORT INFORMATION
  Report Type: Report from Study
  Country: FR (occurrence: FR)
  Receive Date: 20180610
  Receipt Date: 20180620
  Transmission Date: 20180711
  Serious: Yes (Death, Hospitalization, Other)
  Sender: FDA-Public Use
  Company Number: FR-MYLANLABS-2018M1038526

PATIENT
  Age: 70 Year
  Sex: Male

DRUGS (4)
  1. TRAMADOL. [Suspect]
     Active Substance: TRAMADOL
     Dosage: 100 MG, UNK
     Route: 065
  2. NIVOLUMAB [Suspect]
     Active Substance: NIVOLUMAB
     Dosage: 214 MG, UNK
     Route: 042
  3. TRAMADOL. [Suspect]
     Active Substance: TRAMADOL
     Indication: TENDON DISORDER
     Dosage: 50 MG, UNK
     Route: 065
  4. NIVOLUMAB [Suspect]
     Active Substance: NIVOLUMAB
     Indication: LUNG NEOPLASM MALIGNANT
     Dosage: 214 MG, UNK
     Route: 042

REACTIONS (10)
  - Asthenia [Not Recovered/Not Resolved]
  - Decreased appetite [Unknown]
  - Malignant neoplasm progression [Fatal]
  - General physical health deterioration [Fatal]
  - Condition aggravated [Unknown]
  - Somnolence [Unknown]
  - Syncope [Recovered/Resolved]
  - Metastases to bone [Unknown]
  - Tendon disorder [Not Recovered/Not Resolved]
  - Cognitive disorder [Unknown]

NARRATIVE: CASE EVENT DATE: 20170306
